FAERS Safety Report 6792426-6 (Version None)
Quarter: 2010Q2

REPORT INFORMATION
  Report Type: 
  Country: None (occurrence: None)
  Receive Date: 20100624
  Receipt Date: 20080728
  Transmission Date: 20101027
  Serious: No
  Sender: FDA-Public Use
  Company Number: US-PFIZER INC-2008063493

PATIENT
  Sex: Female
  Weight: 54.43 kg

DRUGS (10)
  1. DIFLUCAN [Suspect]
     Indication: FUNGAL SKIN INFECTION
     Dates: start: 20080715, end: 20080717
  2. SYNTHROID [Concomitant]
  3. PLAVIX [Concomitant]
  4. ALLEGRA [Concomitant]
  5. PREVACID [Concomitant]
  6. TYLENOL [Concomitant]
  7. FOLIC ACID [Concomitant]
  8. ALL OTHER THERAPEUTIC PRODUCTS [Concomitant]
  9. ATROPINE SULFATE [Concomitant]
  10. OXYGEN [Concomitant]

REACTIONS (1)
  - EAR HAEMORRHAGE [None]
